FAERS Safety Report 24985120 (Version 1)
Quarter: 2025Q1

REPORT INFORMATION
  Report Type: Report from Study
  Country: US (occurrence: US)
  Receive Date: 20250219
  Receipt Date: 20250219
  Transmission Date: 20250409
  Serious: Yes (Other)
  Sender: ALEXION PHARMACEUTICALS
  Company Number: US-ASTRAZENECA-202502USA004991US

PATIENT

DRUGS (1)
  1. STRENSIQ [Suspect]
     Active Substance: ASFOTASE ALFA
     Route: 065

REACTIONS (27)
  - Transient ischaemic attack [Not Recovered/Not Resolved]
  - Dysarthria [Not Recovered/Not Resolved]
  - Unresponsive to stimuli [Unknown]
  - Amnesia [Unknown]
  - Cognitive disorder [Unknown]
  - Dizziness [Unknown]
  - Asthenia [Unknown]
  - Fall [Unknown]
  - Polyarthritis [Unknown]
  - Neck pain [Unknown]
  - Osteoarthritis [Unknown]
  - Loose tooth [Unknown]
  - Arthritis [Unknown]
  - Injection site granuloma [Unknown]
  - Arthralgia [Unknown]
  - Speech disorder [Unknown]
  - Pain in extremity [Unknown]
  - Spinal compression fracture [Unknown]
  - Spondylolisthesis [Unknown]
  - Sleep disorder [Unknown]
  - Anxiety [Unknown]
  - Depression [Unknown]
  - Pain [Unknown]
  - Blood pressure inadequately controlled [Unknown]
  - Dental restoration failure [Unknown]
  - Skin discolouration [Unknown]
  - Fracture [Unknown]
